FAERS Safety Report 23464729 (Version 1)
Quarter: 2024Q1

REPORT INFORMATION
  Report Type: Spontaneous
  Country: FR (occurrence: FR)
  Receive Date: 20240201
  Receipt Date: 20240201
  Transmission Date: 20240410
  Serious: Yes (Life-Threatening, Hospitalization)
  Sender: FDA-Public Use
  Company Number: FR-ROCHE-3489596

PATIENT
  Age: 55 Year
  Sex: Female
  Weight: 92 kg

DRUGS (4)
  1. CAPECITABINE [Suspect]
     Active Substance: CAPECITABINE
     Indication: Product used for unknown indication
     Route: 048
     Dates: start: 20230324
  2. OXALIPLATIN [Suspect]
     Active Substance: OXALIPLATIN
     Indication: Product used for unknown indication
     Dates: start: 20230324
  3. BEVACIZUMAB [Suspect]
     Active Substance: BEVACIZUMAB
     Indication: Product used for unknown indication
     Dates: start: 20230510
  4. ATEZOLIZUMAB [Suspect]
     Active Substance: ATEZOLIZUMAB
     Indication: Colorectal cancer metastatic
     Dates: start: 20230324

REACTIONS (1)
  - Umbilical hernia [Recovered/Resolved with Sequelae]

NARRATIVE: CASE EVENT DATE: 20230930
